FAERS Safety Report 18789465 (Version 1)
Quarter: 2021Q1

REPORT INFORMATION
  Report Type: Spontaneous
  Country: DE (occurrence: DE)
  Receive Date: 20210126
  Receipt Date: 20210126
  Transmission Date: 20210419
  Serious: Yes (Other)
  Sender: FDA-Public Use
  Company Number: DE-BAYER-2020-284677

PATIENT
  Age: 72 Year
  Sex: Male

DRUGS (2)
  1. STIVARGA [Suspect]
     Active Substance: REGORAFENIB
     Dosage: 40 MG (X3?X2?X3?2X?X3?X2?X3 MO?SO)
  2. STIVARGA [Suspect]
     Active Substance: REGORAFENIB
     Dosage: 40 MG, TID (3 WEEKS ON, 1 WEEK OFF)
     Dates: start: 20200824

REACTIONS (8)
  - Anal injury [Recovered/Resolved]
  - Diarrhoea [Recovering/Resolving]
  - Pain of skin [Recovered/Resolved]
  - Palmar-plantar erythrodysaesthesia syndrome [Recovered/Resolved]
  - Sensitive skin [Recovered/Resolved]
  - Dysphonia [Recovering/Resolving]
  - Rash [Recovered/Resolved]
  - Skin exfoliation [Recovered/Resolved]

NARRATIVE: CASE EVENT DATE: 20201122
